APPROVED DRUG PRODUCT: PROCAINAMIDE HYDROCHLORIDE
Active Ingredient: PROCAINAMIDE HYDROCHLORIDE
Strength: 100MG/ML
Dosage Form/Route: INJECTABLE;INJECTION
Application: A089029 | Product #001
Applicant: HIKMA PHARMACEUTICALS USA INC
Approved: Apr 17, 1986 | RLD: No | RS: No | Type: DISCN